FAERS Safety Report 6658721-6 (Version None)
Quarter: 2010Q1

REPORT INFORMATION
  Report Type: 
  Country: None (occurrence: None)
  Receive Date: 20100330
  Receipt Date: 20100322
  Transmission Date: 20100710
  Serious: Yes (Other)
  Sender: FDA-Public Use
  Company Number: PHHY2010US18087

PATIENT
  Sex: Male

DRUGS (15)
  1. RECLAST [Suspect]
     Dosage: UNK
     Dates: start: 20100121
  2. FOSAMAX [Suspect]
  3. FOSAMAX PLUS D [Suspect]
  4. PREZISTA [Concomitant]
  5. NORVIR [Concomitant]
  6. COZAAR [Concomitant]
  7. PRILOSEC [Concomitant]
  8. AVODART [Concomitant]
  9. GABAPENTIN [Concomitant]
  10. VIAGRA [Concomitant]
  11. DIFLUCAN [Concomitant]
  12. FLEXERIL [Concomitant]
  13. VICODIN [Concomitant]
  14. INTELENCE [Concomitant]
  15. ISENTRESS [Concomitant]

REACTIONS (7)
  - DRY MOUTH [None]
  - HYPOAESTHESIA [None]
  - IMPAIRED HEALING [None]
  - OSTEOPENIA [None]
  - PAIN [None]
  - THIRST [None]
  - TINNITUS [None]
